FAERS Safety Report 5824898-5 (Version None)
Quarter: 2008Q3

REPORT INFORMATION
  Report Type: 
  Country: None (occurrence: None)
  Receive Date: 20080728
  Receipt Date: 20080709
  Transmission Date: 20090109
  Serious: No
  Sender: FDA-Public Use
  Company Number: US-BOEHRINGER INGELHEIM GMBH, GERMANY-2008-BP-09965BP

PATIENT
  Sex: Male

DRUGS (14)
  1. SPIRIVA [Suspect]
     Indication: DYSPNOEA
     Route: 055
     Dates: start: 20080528, end: 20080531
  2. ALBUTEROL [Concomitant]
  3. HUMULIN R [Concomitant]
  4. OMEPRAZOLE [Concomitant]
     Indication: GASTROOESOPHAGEAL REFLUX DISEASE
  5. PRAVASTATIN [Concomitant]
     Indication: BLOOD CHOLESTEROL INCREASED
  6. FLONASE [Concomitant]
     Indication: HYPERSENSITIVITY
  7. METOPROLOL TARTRATE [Concomitant]
     Indication: BLOOD PRESSURE
  8. PLAVIX [Concomitant]
  9. DIOVAN [Concomitant]
     Indication: BLOOD PRESSURE
  10. FUROSEMIDE [Concomitant]
     Indication: BLOOD PRESSURE
  11. NOVOLIN N [Concomitant]
  12. NOVOLIN INSULIN R [Concomitant]
  13. NOVOLIN INSULIN N [Concomitant]
  14. ASPIRIN [Concomitant]

REACTIONS (2)
  - DYSPNOEA [None]
  - INCREASED UPPER AIRWAY SECRETION [None]
